FAERS Safety Report 24922761 (Version 1)
Quarter: 2025Q1

REPORT INFORMATION
  Report Type: Report from Study
  Country: EG (occurrence: EG)
  Receive Date: 20250204
  Receipt Date: 20250204
  Transmission Date: 20250408
  Serious: Yes (Death, Hospitalization, Other)
  Sender: NOVARTIS
  Company Number: EG-002147023-NVSC2025EG018460

PATIENT
  Age: 65 Year
  Sex: Female
  Weight: 80 kg

DRUGS (3)
  1. KISQALI [Suspect]
     Active Substance: RIBOCICLIB
     Indication: Breast cancer metastatic
     Dosage: 200 MG, QD, 3 TABS FOR 21 DAYS AND ONE WEEK OFF
     Route: 048
     Dates: start: 202406, end: 202411
  2. KISQALI [Suspect]
     Active Substance: RIBOCICLIB
     Dosage: 200 MG, QD, 2 TABS FOR 21 DAYS AND ONE WEEK OFF (REDUCED DOSE))
     Route: 048
     Dates: start: 202411, end: 202412
  3. LEVOTHYROXINE [Concomitant]
     Active Substance: LEVOTHYROXINE
     Indication: Thyroid disorder
     Dosage: 1 DOSAGE FORM, QD, 100 UG (MICROGRAM), BEFORE BREAKFAST (TABLET)
     Route: 048

REACTIONS (6)
  - Death [Fatal]
  - Blood creatinine increased [Recovered/Resolved]
  - Renal failure [Unknown]
  - Urine output decreased [Unknown]
  - Blood calcium decreased [Recovered/Resolved]
  - Off label use [Recovered/Resolved]

NARRATIVE: CASE EVENT DATE: 20241101
